FAERS Safety Report 19279021 (Version 1)
Quarter: 2021Q2

REPORT INFORMATION
  Report Type: Spontaneous
  Country: US (occurrence: US)
  Receive Date: 20210520
  Receipt Date: 20210520
  Transmission Date: 20210717
  Serious: Yes (Other)
  Sender: FDA-Public Use
  Company Number: US-BAYER-2021-143666

PATIENT
  Age: 48 Year
  Sex: Female

DRUGS (2)
  1. TICAGRELOR. [Concomitant]
     Active Substance: TICAGRELOR
     Dosage: 90 MG, BID
  2. ACETYLSALICYLIC ACID [Suspect]
     Active Substance: ASPIRIN
     Dosage: 1 DF, QD

REACTIONS (2)
  - Subcapsular hepatic haematoma [None]
  - Haemoperitoneum [None]
